FAERS Safety Report 8990731 (Version 2)
Quarter: 2013Q4

REPORT INFORMATION
  Report Type: Spontaneous
  Country: US (occurrence: US)
  Receive Date: 20121228
  Receipt Date: 20131024
  Transmission Date: 20140711
  Serious: Yes (Hospitalization, Other)
  Sender: FDA-Public Use
  Company Number: US-PFIZER INC-2012237886

PATIENT
  Age: 52 Year
  Sex: Female
  Weight: 89.8 kg

DRUGS (19)
  1. ATENOLOL [Suspect]
     Indication: CARDIAC DISORDER
     Dosage: 50 MG, DAILY
     Route: 048
  2. LISINOPRIL [Suspect]
     Indication: BLOOD PRESSURE ABNORMAL
     Dosage: 20 MG, DAILY
     Route: 048
  3. SEROQUEL XR [Suspect]
     Indication: BIPOLAR DISORDER
     Dosage: 300 MG, DAILY
     Route: 048
  4. SEROQUEL XR [Suspect]
     Indication: AFFECTIVE DISORDER
     Dosage: 100 MG, 1X/DAY, HS
     Route: 048
     Dates: start: 2011, end: 2012
  5. SEROQUEL XR [Suspect]
     Indication: DEPRESSION
     Dosage: 100 MG, 1X/DAY, HS
     Route: 048
     Dates: start: 2012
  6. PRILOSEC [Suspect]
     Indication: GASTROOESOPHAGEAL REFLUX DISEASE
     Dosage: 20 MG, DAILY
     Route: 048
  7. SYMBICORT [Suspect]
     Indication: ASTHMA
     Dosage: 160/4.5 2 PUFFS, 2X/DAY
     Route: 055
  8. SYMBICORT [Suspect]
     Indication: CHRONIC OBSTRUCTIVE PULMONARY DISEASE
  9. CELEXA [Concomitant]
     Indication: DEPRESSION
     Dosage: 40 MG, DAILY
     Route: 048
  10. LAMOTRIGINE [Concomitant]
     Indication: DEPRESSION
     Dosage: 100 MG, DAILY
     Route: 048
  11. LASIX [Concomitant]
     Indication: FLUID RETENTION
     Dosage: 20 MG, DAILY
     Route: 048
     Dates: end: 201208
  12. LASIX [Concomitant]
     Dosage: 80 MG, DAILY
     Route: 048
     Dates: start: 201208
  13. PREDNISONE [Concomitant]
     Indication: RESPIRATORY DISORDER
     Dosage: 10 MG, DAILY
     Route: 048
  14. LIPITOR [Concomitant]
     Indication: BLOOD CHOLESTEROL ABNORMAL
     Dosage: 40 MG, DAILY
     Route: 048
  15. SPIRIVA [Concomitant]
     Indication: RESPIRATORY DISORDER
     Dosage: 1 DF, DAILY
     Route: 055
  16. AMARYL [Concomitant]
     Indication: DIABETES MELLITUS
     Dosage: 4 MG, DAILY
     Route: 048
  17. XANAX [Concomitant]
     Indication: ANXIETY
     Dosage: 1 MG, 2X/DAY AS NEEDED
     Route: 048
  18. WARFARIN [Concomitant]
     Indication: ANTICOAGULANT THERAPY
     Dosage: 2.5-5 MG DAILY
     Route: 048
  19. CARAFATE [Concomitant]
     Indication: GASTROOESOPHAGEAL REFLUX DISEASE
     Dosage: 1 DF, 4X/DAY

REACTIONS (9)
  - Atrial fibrillation [Unknown]
  - Cardiac failure congestive [Unknown]
  - Asthma [Unknown]
  - Drug ineffective [Unknown]
  - Insomnia [Unknown]
  - Off label use [Unknown]
  - Chronic obstructive pulmonary disease [Unknown]
  - Feeling abnormal [Unknown]
  - Feeling abnormal [Unknown]
